FAERS Safety Report 9477374 (Version 1)
Quarter: 2013Q3

REPORT INFORMATION
  Report Type: Spontaneous
  Country: JP (occurrence: JP)
  Receive Date: 20130826
  Receipt Date: 20130826
  Transmission Date: 20140515
  Serious: Yes (Other)
  Sender: FDA-Public Use
  Company Number: JP-PFIZER INC-2013241777

PATIENT
  Age: 14 Year
  Sex: Male

DRUGS (1)
  1. GENOTROPIN TC [Suspect]
     Indication: DWARFISM
     Dosage: 1.8 MG/DAY, 0.35 MG/KG
     Dates: start: 2009

REACTIONS (1)
  - Knee deformity [Not Recovered/Not Resolved]
